FAERS Safety Report 17727062 (Version 3)
Quarter: 2021Q2

REPORT INFORMATION
  Report Type: Spontaneous
  Country: US (occurrence: US)
  Receive Date: 20200430
  Receipt Date: 20210416
  Transmission Date: 20210716
  Serious: Yes (Other)
  Sender: FDA-Public Use
  Company Number: US-ASTRAZENECA-2020SE55801

PATIENT
  Sex: Female
  Weight: 86.2 kg

DRUGS (86)
  1. NEXIUM 24HR [Suspect]
     Active Substance: ESOMEPRAZOLE MAGNESIUM
     Indication: IMPAIRED GASTRIC EMPTYING
     Dosage: MORNING AND EVENING
     Route: 048
     Dates: start: 2014
  2. TIZANIDINE. [Concomitant]
     Active Substance: TIZANIDINE
  3. CLOBETASOL [Concomitant]
     Active Substance: CLOBETASOL
  4. CIPROFLOXACIN. [Concomitant]
     Active Substance: CIPROFLOXACIN
  5. LIDODERM [Concomitant]
     Active Substance: LIDOCAINE
  6. NEXIUM [Suspect]
     Active Substance: ESOMEPRAZOLE MAGNESIUM
     Indication: BARRETT^S OESOPHAGUS
     Route: 048
     Dates: start: 200501, end: 201501
  7. NEXIUM [Suspect]
     Active Substance: ESOMEPRAZOLE MAGNESIUM
     Indication: GASTROOESOPHAGEAL REFLUX DISEASE
     Route: 048
     Dates: start: 2005, end: 2017
  8. DICLOFENAC [Concomitant]
     Active Substance: DICLOFENAC
     Indication: PAIN
     Dates: start: 2017
  9. DICLOFENAC [Concomitant]
     Active Substance: DICLOFENAC
     Indication: INFLAMMATION
     Dates: start: 2017
  10. HYDROCODONE BITARTRATE AND ACETAMINOPHEN [Concomitant]
     Active Substance: ACETAMINOPHEN\HYDROCODONE BITARTRATE
  11. AMITIZA [Concomitant]
     Active Substance: LUBIPROSTONE
  12. NITROGLYCERIN. [Concomitant]
     Active Substance: NITROGLYCERIN
  13. KETOCONAZOLE. [Concomitant]
     Active Substance: KETOCONAZOLE
  14. LORAZEPAM. [Concomitant]
     Active Substance: LORAZEPAM
  15. NEXIUM [Suspect]
     Active Substance: ESOMEPRAZOLE MAGNESIUM
     Indication: IMPAIRED GASTRIC EMPTYING
     Route: 048
     Dates: start: 2005, end: 2017
  16. NEXIUM 24HR [Suspect]
     Active Substance: ESOMEPRAZOLE MAGNESIUM
     Indication: GASTROOESOPHAGEAL REFLUX DISEASE
     Dosage: MORNING AND EVENING
     Route: 048
     Dates: start: 2014
  17. NEXIUM 24HR [Suspect]
     Active Substance: ESOMEPRAZOLE MAGNESIUM
     Indication: BARRETT^S OESOPHAGUS
     Dosage: MORNING AND EVENING
     Route: 048
     Dates: start: 2014
  18. PROTONIX [Suspect]
     Active Substance: PANTOPRAZOLE SODIUM
     Indication: GASTROOESOPHAGEAL REFLUX DISEASE
     Dosage: 40.0MG UNKNOWN
     Route: 048
     Dates: start: 20190517
  19. CARTIA [Concomitant]
  20. SUCRALFATE. [Concomitant]
     Active Substance: SUCRALFATE
  21. FISH OIL [Concomitant]
     Active Substance: FISH OIL
  22. BENADRYL [Concomitant]
     Active Substance: DIPHENHYDRAMINE HYDROCHLORIDE
  23. NEXIUM [Suspect]
     Active Substance: ESOMEPRAZOLE MAGNESIUM
     Indication: IMPAIRED GASTRIC EMPTYING
     Route: 048
     Dates: start: 200501, end: 201501
  24. NEXIUM 24HR [Suspect]
     Active Substance: ESOMEPRAZOLE MAGNESIUM
     Indication: GASTROOESOPHAGEAL REFLUX DISEASE
     Route: 048
     Dates: start: 200501, end: 201501
  25. PROTONIX [Suspect]
     Active Substance: PANTOPRAZOLE SODIUM
     Indication: GASTROOESOPHAGEAL REFLUX DISEASE
     Dosage: GENERIC20.0MG UNKNOWN
     Route: 065
     Dates: start: 2016
  26. ALLOPURINOL. [Concomitant]
     Active Substance: ALLOPURINOL
     Indication: GOUT
     Dates: start: 2017, end: 2018
  27. AZITHROMYCIN ANHYDROUS. [Concomitant]
     Active Substance: AZITHROMYCIN ANHYDROUS
  28. PARICALCITOL. [Concomitant]
     Active Substance: PARICALCITOL
  29. POTASSIUM CHLORIDE. [Concomitant]
     Active Substance: POTASSIUM CHLORIDE
  30. TRAZODONE [Concomitant]
     Active Substance: TRAZODONE HYDROCHLORIDE
  31. METRONIDAZOLE. [Concomitant]
     Active Substance: METRONIDAZOLE
  32. FLUTICASONE. [Concomitant]
     Active Substance: FLUTICASONE
  33. BREO ELLIPTA [Concomitant]
     Active Substance: FLUTICASONE FUROATE\VILANTEROL TRIFENATATE
  34. BELVIQ [Concomitant]
     Active Substance: LORCASERIN HYDROCHLORIDE
  35. ONDANSETRON [Concomitant]
     Active Substance: ONDANSETRON
  36. SUMATRIPTAN. [Concomitant]
     Active Substance: SUMATRIPTAN
  37. DUONEB [Concomitant]
     Active Substance: ALBUTEROL SULFATE\IPRATROPIUM BROMIDE
  38. DEXTROSE. [Concomitant]
     Active Substance: DEXTROSE
  39. ALDACTONE [Concomitant]
     Active Substance: SPIRONOLACTONE
  40. ATROVENT [Concomitant]
     Active Substance: IPRATROPIUM BROMIDE
  41. ROPINIROLE. [Concomitant]
     Active Substance: ROPINIROLE
  42. TIGAN [Concomitant]
     Active Substance: TRIMETHOBENZAMIDE HYDROCHLORIDE
  43. NEXIUM [Suspect]
     Active Substance: ESOMEPRAZOLE MAGNESIUM
     Indication: BARRETT^S OESOPHAGUS
     Route: 048
     Dates: start: 2005, end: 2017
  44. PROTONIX [Suspect]
     Active Substance: PANTOPRAZOLE SODIUM
     Indication: IMPAIRED GASTRIC EMPTYING
     Dosage: GENERIC20.0MG UNKNOWN
     Route: 065
     Dates: start: 2016
  45. TRAMADOL. [Concomitant]
     Active Substance: TRAMADOL
     Indication: PAIN
     Dates: start: 2017, end: 2018
  46. RANITIDINE. [Concomitant]
     Active Substance: RANITIDINE
     Dates: start: 2013
  47. MILK OF MAGNESIA [Concomitant]
     Active Substance: MAGNESIUM HYDROXIDE
     Dosage: AS NEEDED
     Dates: start: 1998, end: 1999
  48. DULOXETINE. [Concomitant]
     Active Substance: DULOXETINE
  49. CEPHALEXIN. [Concomitant]
     Active Substance: CEPHALEXIN
  50. FLUVIRIN NOS [Concomitant]
     Active Substance: INFLUENZA VIRUS VACCINE
  51. VITAMIN D3 [Concomitant]
     Active Substance: CHOLECALCIFEROL
  52. BUPROPION. [Concomitant]
     Active Substance: BUPROPION
  53. MAGNESIUM SULFATE. [Concomitant]
     Active Substance: MAGNESIUM SULFATE
  54. METOPROLOL. [Concomitant]
     Active Substance: METOPROLOL
  55. NYSTATIN. [Concomitant]
     Active Substance: NYSTATIN
  56. NEXIUM 24HR [Suspect]
     Active Substance: ESOMEPRAZOLE MAGNESIUM
     Indication: BARRETT^S OESOPHAGUS
     Route: 048
     Dates: start: 200501, end: 201501
  57. AZITHROMYCIN ANHYDROUS. [Concomitant]
     Active Substance: AZITHROMYCIN ANHYDROUS
     Indication: INFECTION
     Dates: start: 2017, end: 2018
  58. CIPROFLOXACIN. [Concomitant]
     Active Substance: CIPROFLOXACIN
     Indication: INFECTION
     Dates: start: 2016, end: 2017
  59. TUMS [Concomitant]
     Active Substance: CALCIUM CARBONATE
     Dosage: AS NEEDED
     Dates: start: 1998, end: 1999
  60. PEPTO?BISMOL [Concomitant]
     Active Substance: BISMUTH SUBSALICYLATE
     Dosage: AS NEEDED
     Dates: start: 1998, end: 1999
  61. METHYLPREDNISOLONE. [Concomitant]
     Active Substance: METHYLPREDNISOLONE
  62. RESTASIS [Concomitant]
     Active Substance: CYCLOSPORINE
  63. HYOSCYAMINE. [Concomitant]
     Active Substance: HYOSCYAMINE
  64. MELOXICAM. [Concomitant]
     Active Substance: MELOXICAM
  65. NEXIUM 24HR [Suspect]
     Active Substance: ESOMEPRAZOLE MAGNESIUM
     Indication: IMPAIRED GASTRIC EMPTYING
     Route: 048
     Dates: start: 200501, end: 201501
  66. DOXYCYCLINE. [Concomitant]
     Active Substance: DOXYCYCLINE
     Indication: INFECTION
     Dates: start: 2017
  67. IBUPROFEN. [Concomitant]
     Active Substance: IBUPROFEN
     Indication: PAIN
     Dates: start: 2018
  68. ISORBIDE [Concomitant]
     Active Substance: ISOSORBIDE
  69. AMOXICILLIN. [Concomitant]
     Active Substance: AMOXICILLIN
  70. FLUCONAZOLE. [Concomitant]
     Active Substance: FLUCONAZOLE
  71. DICLOFENAC [Concomitant]
     Active Substance: DICLOFENAC
  72. NYSTATIN/TRIAMCINOLONE [Concomitant]
     Active Substance: NYSTATIN\TRIAMCINOLONE
  73. AMIODARONE [Concomitant]
     Active Substance: AMIODARONE
  74. BIOTIN [Concomitant]
     Active Substance: BIOTIN
  75. NEXIUM [Suspect]
     Active Substance: ESOMEPRAZOLE MAGNESIUM
     Indication: GASTROOESOPHAGEAL REFLUX DISEASE
     Route: 048
     Dates: start: 200501, end: 201501
  76. PROTONIX [Suspect]
     Active Substance: PANTOPRAZOLE SODIUM
     Indication: IMPAIRED GASTRIC EMPTYING
     Dosage: 40.0MG UNKNOWN
     Route: 048
     Dates: start: 20190517
  77. BUMETANIDE. [Concomitant]
     Active Substance: BUMETANIDE
     Indication: HYPERTENSION
     Dates: start: 2016, end: 2017
  78. ALKA?SELTZER [Concomitant]
     Active Substance: ANHYDROUS CITRIC ACID\ASPIRIN\SODIUM BICARBONATE
     Dosage: AS NEEDED
     Dates: start: 1998, end: 1999
  79. CYCLOBENZAPRINE. [Concomitant]
     Active Substance: CYCLOBENZAPRINE
  80. ROSUVASTATIN. [Concomitant]
     Active Substance: ROSUVASTATIN
  81. PREGABALIN. [Concomitant]
     Active Substance: PREGABALIN
  82. GABAPENTIN. [Concomitant]
     Active Substance: GABAPENTIN
  83. SYNTHROID [Concomitant]
     Active Substance: LEVOTHYROXINE SODIUM
  84. PENICILLIN VK [Concomitant]
     Active Substance: PENICILLIN V POTASSIUM
  85. HEPARIN [Concomitant]
     Active Substance: HEPARIN SODIUM
  86. NOVOLOG [Concomitant]
     Active Substance: INSULIN ASPART

REACTIONS (5)
  - Acute kidney injury [Not Recovered/Not Resolved]
  - Nephrogenic anaemia [Unknown]
  - Renal failure [Unknown]
  - Chronic kidney disease [Not Recovered/Not Resolved]
  - Hyperparathyroidism secondary [Unknown]
